FAERS Safety Report 10066326 (Version 1)
Quarter: 2014Q2

REPORT INFORMATION
  Report Type: Spontaneous
  Country: SE (occurrence: SE)
  Receive Date: 20140408
  Receipt Date: 20140408
  Transmission Date: 20141212
  Serious: Yes (Other)
  Sender: FDA-Public Use
  Company Number: SE-ACTAVIS-2013-24786

PATIENT
  Age: 69 Year
  Sex: Male

DRUGS (2)
  1. SIMVASTATIN ACTAVIS [Suspect]
     Indication: PRODUCT USED FOR UNKNOWN INDICATION
     Route: 065
  2. ATORVASTATIN [Concomitant]
     Indication: PRODUCT USED FOR UNKNOWN INDICATION

REACTIONS (3)
  - Arrhythmia [Recovered/Resolved]
  - Pulse pressure decreased [Recovered/Resolved]
  - Extrasystoles [Recovered/Resolved]
